FAERS Safety Report 8568402 (Version 5)
Quarter: 2013Q4

REPORT INFORMATION
  Report Type: Spontaneous
  Country: US (occurrence: US)
  Receive Date: 20120518
  Receipt Date: 20131105
  Transmission Date: 20140711
  Serious: Yes (Other)
  Sender: FDA-Public Use
  Company Number: US-PFIZER INC-2012118377

PATIENT
  Age: 66 Year
  Sex: Female
  Weight: 72.56 kg

DRUGS (11)
  1. LYRICA [Suspect]
     Indication: NEUROPATHY PERIPHERAL
     Dosage: 75 MG, 2X/DAY
     Route: 048
     Dates: start: 2009, end: 201207
  2. LIPITOR [Suspect]
     Indication: BLOOD CHOLESTEROL INCREASED
     Dosage: 20 MG, 1X/DAY
     Route: 048
  3. TOVIAZ [Suspect]
     Indication: EOSINOPHILIC CYSTITIS
     Dosage: 8 MG, 1X/DAY
     Route: 048
  4. XANAX [Concomitant]
     Dosage: UNK
  5. SEROQUEL [Concomitant]
     Dosage: 100, UNK
  6. TRAZODONE [Concomitant]
     Dosage: UNK
  7. IMIPRAMINE [Concomitant]
     Dosage: UNK
  8. AMBIEN [Concomitant]
     Dosage: UNK
  9. ELMIRON [Concomitant]
     Dosage: UNK
  10. TRAMADOL [Concomitant]
     Dosage: UNK
  11. NAPROXEN [Concomitant]
     Dosage: UNK

REACTIONS (8)
  - Accident at work [Unknown]
  - Depression [Not Recovered/Not Resolved]
  - Anxiety [Not Recovered/Not Resolved]
  - Aphagia [Unknown]
  - Weight increased [Unknown]
  - Malaise [Unknown]
  - Weight decreased [Unknown]
  - Pain [Unknown]
